FAERS Safety Report 23185849 (Version 1)
Quarter: 2023Q4

REPORT INFORMATION
  Report Type: Spontaneous
  Country: US (occurrence: US)
  Receive Date: 20231115
  Receipt Date: 20231115
  Transmission Date: 20240110
  Serious: No
  Sender: FDA-Public Use
  Company Number: US-OTSUKA-2023_016099

PATIENT
  Sex: Female
  Weight: 81.63 kg

DRUGS (1)
  1. NUEDEXTA [Suspect]
     Active Substance: DEXTROMETHORPHAN HYDROBROMIDE\QUINIDINE SULFATE
     Indication: Inappropriate affect
     Dosage: 20 MG
     Route: 065
     Dates: start: 2022

REACTIONS (2)
  - Therapy interrupted [Unknown]
  - Product use in unapproved indication [Unknown]
